FAERS Safety Report 24982998 (Version 1)
Quarter: 2025Q1

REPORT INFORMATION
  Report Type: Spontaneous
  Country: GB (occurrence: GB)
  Receive Date: 20250218
  Receipt Date: 20250218
  Transmission Date: 20250409
  Serious: Yes (Other)
  Sender: MERCK SHARP & DOHME LLC
  Company Number: None

PATIENT
  Age: 22 Year
  Sex: Male
  Weight: 87 kg

DRUGS (2)
  1. RALTEGRAVIR [Suspect]
     Active Substance: RALTEGRAVIR
     Indication: Prophylaxis against HIV infection
     Dosage: 600MG TWICE DAILY, 200/245MG FOR OTHER MEDICATION ONCE DAILY
     Dates: start: 20250211
  2. EMTRICITABINE\TENOFOVIR [Concomitant]
     Active Substance: EMTRICITABINE\TENOFOVIR
     Indication: Prophylaxis against HIV infection
     Dates: start: 20250211

REACTIONS (7)
  - Musculoskeletal stiffness [Recovering/Resolving]
  - Lymphadenopathy [Not Recovered/Not Resolved]
  - Paraesthesia [Not Recovered/Not Resolved]
  - Fatigue [Not Recovered/Not Resolved]
  - Pyrexia [Recovering/Resolving]
  - Dyspnoea [Not Recovered/Not Resolved]
  - Headache [Recovering/Resolving]

NARRATIVE: CASE EVENT DATE: 20250211
